FAERS Safety Report 5281236-7 (Version None)
Quarter: 2007Q1

REPORT INFORMATION
  Report Type: 
  Country: None (occurrence: None)
  Receive Date: 20070323
  Receipt Date: 20070313
  Transmission Date: 20070707
  Serious: Yes (Hospitalization)
  Sender: FDA-Public Use
  Company Number: 070313-0000295

PATIENT
  Age: 35 Year
  Sex: Female

DRUGS (16)
  1. DACTINOMYCIN [Suspect]
     Indication: BENIGN HYDATIDIFORM MOLE
     Dosage: SEE IMAGE
     Route: 042
     Dates: start: 20070126, end: 20070129
  2. DACTINOMYCIN [Suspect]
     Indication: BENIGN HYDATIDIFORM MOLE
     Dosage: SEE IMAGE
     Route: 042
     Dates: start: 20061218
  3. DACTINOMYCIN [Suspect]
     Indication: BENIGN HYDATIDIFORM MOLE
     Dosage: SEE IMAGE
     Route: 042
     Dates: start: 20070105
  4. DACTINOMYCIN [Suspect]
     Indication: BENIGN HYDATIDIFORM MOLE
     Dosage: SEE IMAGE
     Route: 042
     Dates: start: 20070218
  5. CYCLOPHOSPHAMIDE [Suspect]
     Indication: BENIGN HYDATIDIFORM MOLE
     Dosage: SEE IMAGE
     Dates: start: 20070126, end: 20070129
  6. CYCLOPHOSPHAMIDE [Suspect]
     Indication: BENIGN HYDATIDIFORM MOLE
     Dosage: SEE IMAGE
     Dates: start: 20070105
  7. CYCLOPHOSPHAMIDE [Suspect]
     Indication: BENIGN HYDATIDIFORM MOLE
     Dosage: SEE IMAGE
     Dates: start: 20070218
  8. KYTRIL [Concomitant]
  9. MEYLON [Concomitant]
  10. PRIMPERAN INJ [Concomitant]
  11. DECADRON [Suspect]
     Indication: BENIGN HYDATIDIFORM MOLE
     Dosage: 8 MG;Q3D;PO
     Route: 048
     Dates: start: 20070127, end: 20070129
  12. METHOTREXATE [Suspect]
     Indication: BENIGN HYDATIDIFORM MOLE
     Dosage: 20 MG;QD;IM
     Route: 030
     Dates: start: 20070126, end: 20070129
  13. METHOTREXATE [Suspect]
     Indication: BENIGN HYDATIDIFORM MOLE
     Dosage: 20 MG;QD;IM
     Route: 030
     Dates: start: 20060626
  14. METHOTREXATE [Suspect]
     Indication: BENIGN HYDATIDIFORM MOLE
     Dosage: 20 MG;QD;IM
     Route: 030
     Dates: start: 20061218
  15. METHOTREXATE [Suspect]
     Indication: BENIGN HYDATIDIFORM MOLE
     Dosage: 20 MG;QD;IM
     Route: 030
     Dates: start: 20070105
  16. METHOTREXATE [Suspect]
     Indication: BENIGN HYDATIDIFORM MOLE
     Dosage: 20 MG;QD;IM
     Route: 030
     Dates: start: 20070218

REACTIONS (6)
  - BLISTER [None]
  - ERYTHEMA MULTIFORME [None]
  - HEPATIC FUNCTION ABNORMAL [None]
  - NAUSEA [None]
  - NEUTROPENIA [None]
  - VOMITING [None]
